FAERS Safety Report 6027717-X (Version None)
Quarter: 2009Q1

REPORT INFORMATION
  Report Type: 
  Country: None (occurrence: None)
  Receive Date: 20090105
  Receipt Date: 20081220
  Transmission Date: 20090719
  Serious: Yes (Other)
  Sender: FDA-Public Use
  Company Number: US-BAYER-200833510GPV

PATIENT
  Age: 79 Year
  Sex: Male

DRUGS (3)
  1. SORAFENIB [Suspect]
     Indication: MALIGNANT MELANOMA
     Route: 065
  2. SORAFENIB [Suspect]
     Route: 065
  3. TEMOZOLOMIDE [Concomitant]
     Indication: MALIGNANT MELANOMA
     Route: 065

REACTIONS (3)
  - BLOOD AMYLASE INCREASED [None]
  - LIPASE INCREASED [None]
  - RASH [None]
